FAERS Safety Report 7104890-3 (Version None)
Quarter: 2010Q4

REPORT INFORMATION
  Report Type: 
  Country: None (occurrence: None)
  Receive Date: 20101110
  Receipt Date: 20101029
  Transmission Date: 20110411
  Serious: Yes (Death)
  Sender: FDA-Public Use
  Company Number: UTC-001861

PATIENT
  Age: 81 Year
  Sex: Female
  Weight: 61.8 kg

DRUGS (2)
  1. REMODULIN [Suspect]
     Indication: PULMONARY HYPERTENSION
     Dosage: 21.6 UG/KG (0.015 UG/KG, 1 IN 1 MIN), SUBCUTANEOUS
     Route: 058
     Dates: start: 20061206
  2. ADCIRCA [Concomitant]

REACTIONS (1)
  - DEATH [None]
